FAERS Safety Report 9640307 (Version 2)
Quarter: 2013Q4

REPORT INFORMATION
  Report Type: Spontaneous
  Country: US (occurrence: None)
  Receive Date: 20131021
  Receipt Date: 20131104
  Transmission Date: 20140711
  Serious: Yes (Hospitalization)
  Sender: FDA-Public Use
  Company Number: 1948058

PATIENT
  Age: 68 Year
  Sex: Male
  Weight: 70.4 kg

DRUGS (3)
  1. PENTOSTATINE [Suspect]
     Indication: CHRONIC LYMPHOCYTIC LEUKAEMIA
     Dates: start: 20090921, end: 20091214
  2. (CYCLOPHOSPHAMIDE) [Suspect]
     Indication: CHRONIC LYMPHOCYTIC LEUKAEMIA
     Dates: start: 20090921, end: 20091214
  3. RITUXIMAB [Suspect]
     Indication: CHRONIC LYMPHOCYTIC LEUKAEMIA
     Dosage: 21SEP2013-14DEC2009
     Route: 042
     Dates: start: 20090921, end: 20091214

REACTIONS (3)
  - Renal failure acute [None]
  - Platelet count decreased [None]
  - Sinusitis [None]
